FAERS Safety Report 9008309 (Version 2)
Quarter: 2013Q4

REPORT INFORMATION
  Report Type: Spontaneous
  Country: JP (occurrence: JP)
  Receive Date: 20130111
  Receipt Date: 20131008
  Transmission Date: 20140711
  Serious: No
  Sender: FDA-Public Use
  Company Number: JP-JNJFOC-20130101820

PATIENT
  Age: 70 Year
  Sex: Female

DRUGS (1)
  1. DUROTEP MT [Suspect]
     Indication: CANCER PAIN
     Route: 063
     Dates: start: 201212, end: 201303

REACTIONS (2)
  - Application site pruritus [Recovered/Resolved]
  - Incorrect route of drug administration [Unknown]
